FAERS Safety Report 11137841 (Version 1)
Quarter: 2015Q2

REPORT INFORMATION
  Report Type: Spontaneous
  Country: US (occurrence: US)
  Receive Date: 20150526
  Receipt Date: 20150526
  Transmission Date: 20150821
  Serious: No
  Sender: FDA-Public Use
  Company Number: US-MALLINCKRODT-T201500288

PATIENT
  Age: 37 Year
  Sex: Female

DRUGS (1)
  1. H.P. ACTHAR [Suspect]
     Active Substance: CORTICOTROPIN
     Indication: SYSTEMIC LUPUS ERYTHEMATOSUS
     Dosage: 80 U, BIWEEKLY
     Route: 065
     Dates: start: 20150106, end: 20150115

REACTIONS (7)
  - Swelling face [Unknown]
  - Insomnia [Unknown]
  - Injection site bruising [Unknown]
  - Gastrointestinal sounds abnormal [Unknown]
  - Joint swelling [Unknown]
  - Abdominal distension [Unknown]
  - Weight increased [Unknown]

NARRATIVE: CASE EVENT DATE: 201501
